FAERS Safety Report 6211091-X (Version None)
Quarter: 2009Q2

REPORT INFORMATION
  Report Type: 
  Country: None (occurrence: None)
  Receive Date: 20090602
  Receipt Date: 20090527
  Transmission Date: 20091009
  Serious: Yes (Hospitalization, Other)
  Sender: FDA-Public Use
  Company Number: US-BAYER-200912814NA

PATIENT
  Age: 32 Year
  Sex: Female
  Weight: 88 kg

DRUGS (1)
  1. MIRENA [Suspect]
     Indication: CONTRACEPTION
     Dosage: CONTINUOUS
     Route: 015
     Dates: start: 20070801, end: 20090213

REACTIONS (3)
  - IUD MIGRATION [None]
  - PAIN [None]
  - PROCEDURAL PAIN [None]
